FAERS Safety Report 18568611 (Version 1)
Quarter: 2020Q4

REPORT INFORMATION
  Report Type: Spontaneous
  Country: US (occurrence: US)
  Receive Date: 20201202
  Receipt Date: 20201202
  Transmission Date: 20210114
  Serious: No
  Sender: FDA-Public Use
  Company Number: US-BAYER-2020-257515

PATIENT
  Sex: Male

DRUGS (1)
  1. CLARITIN-D 24 HOUR [Suspect]
     Active Substance: LORATADINE\PSEUDOEPHEDRINE SULFATE
     Indication: UPPER-AIRWAY COUGH SYNDROME
     Dosage: UNK
     Route: 065

REACTIONS (4)
  - Off label use [Unknown]
  - Feeling jittery [None]
  - Product use in unapproved indication [Unknown]
  - Upper-airway cough syndrome [Not Recovered/Not Resolved]
